FAERS Safety Report 17856401 (Version 6)
Quarter: 2020Q4

REPORT INFORMATION
  Report Type: Report from Study
  Country: US (occurrence: US)
  Receive Date: 20200603
  Receipt Date: 20201214
  Transmission Date: 20210113
  Serious: Yes (Other)
  Sender: FDA-Public Use
  Company Number: NVSC2020US153883

PATIENT
  Age: 62 Year
  Sex: Male

DRUGS (1)
  1. ENTRESTO [Suspect]
     Active Substance: SACUBITRIL\VALSARTAN
     Indication: CARDIAC FAILURE CHRONIC
     Dosage: UNK
     Route: 065

REACTIONS (12)
  - Arthralgia [Unknown]
  - Blood glucose decreased [Unknown]
  - Diabetic wound [Unknown]
  - Product dose omission issue [Unknown]
  - Decreased activity [Unknown]
  - Pain in extremity [Unknown]
  - Cardiovascular disorder [Unknown]
  - Weight increased [Unknown]
  - Diarrhoea [Unknown]
  - Weight decreased [Unknown]
  - Arrhythmia [Unknown]
  - Blood glucose increased [Unknown]
